FAERS Safety Report 6121407-0 (Version None)
Quarter: 2009Q1

REPORT INFORMATION
  Report Type: 
  Country: None (occurrence: None)
  Receive Date: 20090317
  Receipt Date: 20090306
  Transmission Date: 20090719
  Serious: Yes (Hospitalization, Other)
  Sender: FDA-Public Use
  Company Number: ES-JNJFOC-20081200389

PATIENT
  Sex: Female
  Weight: 2.23 kg

DRUGS (9)
  1. PREZISTA [Suspect]
     Indication: DRUG EXPOSURE DURING PREGNANCY
  2. RITONAVIR [Suspect]
     Indication: DRUG EXPOSURE DURING PREGNANCY
  3. TRUVADA [Suspect]
     Indication: DRUG EXPOSURE DURING PREGNANCY
  4. KALETRA [Concomitant]
     Indication: DRUG EXPOSURE DURING PREGNANCY
  5. COMBIVIR [Concomitant]
     Indication: DRUG EXPOSURE DURING PREGNANCY
  6. ZIDOVUDINE [Concomitant]
     Indication: DRUG EXPOSURE DURING PREGNANCY
  7. ANAESTHESIA [Concomitant]
     Indication: DRUG EXPOSURE DURING PREGNANCY
  8. FOLIC ACID [Concomitant]
     Indication: DRUG EXPOSURE DURING PREGNANCY
     Route: 064
  9. FERRUM SULPHATE [Concomitant]
     Indication: DRUG EXPOSURE DURING PREGNANCY
     Route: 064

REACTIONS (2)
  - PREMATURE BABY [None]
  - SMALL FOR DATES BABY [None]
